FAERS Safety Report 13194798 (Version 2)
Quarter: 2017Q1

REPORT INFORMATION
  Report Type: Spontaneous
  Country: JP (occurrence: JP)
  Receive Date: 20170207
  Receipt Date: 20170327
  Transmission Date: 20170428
  Serious: Yes (Death, Hospitalization, Disabling, Other)
  Sender: FDA-Public Use
  Company Number: JP-SA-2017SA009520

PATIENT
  Age: 75 Year
  Sex: Male
  Weight: 70 kg

DRUGS (2)
  1. TAXOTERE [Suspect]
     Active Substance: DOCETAXEL
     Indication: HORMONE-REFRACTORY PROSTATE CANCER
     Dosage: DOSE 90 MG/BODY
     Route: 041
     Dates: start: 20170106, end: 20170106
  2. LEVOFLOXACIN. [Suspect]
     Active Substance: LEVOFLOXACIN
     Indication: PYREXIA
     Route: 048
     Dates: start: 20170106, end: 20170108

REACTIONS (13)
  - Skin erosion [Recovering/Resolving]
  - Oedema [Recovering/Resolving]
  - Respiratory failure [Fatal]
  - Delirium [Unknown]
  - Stevens-Johnson syndrome [Fatal]
  - Aphasia [Recovering/Resolving]
  - Conjunctivitis [Unknown]
  - Urinary retention [Unknown]
  - Pyrexia [Recovering/Resolving]
  - Stomatitis [Recovering/Resolving]
  - Rash generalised [Unknown]
  - Dysuria [Unknown]
  - Blister [Recovering/Resolving]

NARRATIVE: CASE EVENT DATE: 20170108
